FAERS Safety Report 6325142-5 (Version None)
Quarter: 2009Q3

REPORT INFORMATION
  Report Type: 
  Country: None (occurrence: None)
  Receive Date: 20090824
  Receipt Date: 20090701
  Transmission Date: 20100115
  Serious: No
  Sender: FDA-Public Use
  Company Number: US-ABBOTT-09P-163-0583481-00

PATIENT
  Sex: Male
  Weight: 83.99 kg

DRUGS (9)
  1. NIASPAN [Suspect]
     Indication: BLOOD CHOLESTEROL INCREASED
  2. DIOVAN [Concomitant]
     Indication: HYPERTENSION
  3. CADUET [Concomitant]
     Indication: BLOOD CHOLESTEROL INCREASED
  4. CADUET [Concomitant]
     Indication: HYPERTENSION
  5. COREG [Concomitant]
     Indication: HYPERTENSION
  6. PLAVIX [Concomitant]
     Indication: MYOCARDIAL INFARCTION
  7. SYNTHROID [Concomitant]
     Indication: HYPOTHYROIDISM
  8. ASPIRIN [Concomitant]
     Indication: FLUSHING
  9. ASPIRIN [Concomitant]
     Indication: PROPHYLAXIS

REACTIONS (2)
  - FOREIGN BODY TRAUMA [None]
  - MEDICATION RESIDUE [None]
